FAERS Safety Report 6060182-5 (Version None)
Quarter: 2009Q1

REPORT INFORMATION
  Report Type: 
  Country: None (occurrence: None)
  Receive Date: 20090128
  Receipt Date: 20090115
  Transmission Date: 20090719
  Serious: Yes (Hospitalization)
  Sender: FDA-Public Use
  Company Number: 2009S1000021

PATIENT
  Age: 62 Year
  Sex: Male

DRUGS (1)
  1. OLUX E [Suspect]
     Indication: ACRODERMATITIS
     Dosage: BID; TOP
     Route: 061
     Dates: start: 20081230

REACTIONS (1)
  - LOCALISED INFECTION [None]
